FAERS Safety Report 7904266-2 (Version None)
Quarter: 2011Q4

REPORT INFORMATION
  Report Type: 
  Country: None (occurrence: None)
  Receive Date: 20111109
  Receipt Date: 20111103
  Transmission Date: 20120403
  Serious: Yes (Other)
  Sender: FDA-Public Use
  Company Number: US-BAYER-2011-107044

PATIENT
  Age: 34 Year
  Sex: Female
  Weight: 54 kg

DRUGS (1)
  1. YAZ [Suspect]
     Dosage: 3MG/0.02MG
     Route: 048
     Dates: start: 20060401, end: 20110101

REACTIONS (6)
  - PAIN IN EXTREMITY [None]
  - METRORRHAGIA [None]
  - CONTUSION [None]
  - OEDEMA PERIPHERAL [None]
  - ARTHRALGIA [None]
  - VENOUS THROMBOSIS LIMB [None]
